FAERS Safety Report 5276962-X (Version None)
Quarter: 2007Q1

REPORT INFORMATION
  Report Type: 
  Country: None (occurrence: None)
  Receive Date: 20070327
  Receipt Date: 20070205
  Transmission Date: 20070707
  Serious: No
  Sender: FDA-Public Use
  Company Number: US-BRISTOL-MYERS SQUIBB COMPANY-13553359

PATIENT
  Age: 65 Year
  Sex: Female
  Weight: 63 kg

DRUGS (6)
  1. ORENCIA [Suspect]
     Indication: RHEUMATOID ARTHRITIS
     Route: 042
     Dates: start: 20060501, end: 20060701
  2. METHOTREXATE [Concomitant]
  3. FOLIC ACID [Concomitant]
  4. PREDNISONE [Concomitant]
  5. MULTI-VITAMINS [Concomitant]
  6. CALCIUM SUPPLEMENT [Concomitant]

REACTIONS (5)
  - EAR INFECTION [None]
  - LYMPHADENOPATHY [None]
  - NAUSEA [None]
  - SINUS CONGESTION [None]
  - SINUSITIS [None]
